FAERS Safety Report 5600515-4 (Version None)
Quarter: 2008Q1

REPORT INFORMATION
  Report Type: 
  Country: None (occurrence: None)
  Receive Date: 20080116
  Receipt Date: 20080102
  Transmission Date: 20080703
  Serious: Yes (Hospitalization)
  Sender: FDA-Public Use
  Company Number: POMP-10842

PATIENT
  Age: 56 Year
  Sex: Male
  Weight: 58.9 kg

DRUGS (17)
  1. MYOZYME [Suspect]
     Indication: GLYCOGEN STORAGE DISEASE TYPE II
     Dosage: SEE IMAGE
     Route: 042
     Dates: start: 20060323, end: 20061113
  2. MYOZYME [Suspect]
     Indication: GLYCOGEN STORAGE DISEASE TYPE II
     Dosage: SEE IMAGE
     Route: 042
     Dates: start: 20070110, end: 20070110
  3. MYOZYME [Suspect]
     Indication: GLYCOGEN STORAGE DISEASE TYPE II
     Dosage: SEE IMAGE
     Route: 042
     Dates: start: 20070209, end: 20070320
  4. MYOZYME [Suspect]
     Indication: GLYCOGEN STORAGE DISEASE TYPE II
     Dosage: SEE IMAGE
     Route: 042
     Dates: start: 20070327, end: 20070327
  5. MYOZYME [Suspect]
     Indication: GLYCOGEN STORAGE DISEASE TYPE II
     Dosage: SEE IMAGE
     Route: 042
     Dates: start: 20070406, end: 20070921
  6. MYOZYME [Suspect]
  7. MYOZYME [Suspect]
  8. MYOZYME [Suspect]
  9. AZELASTINE (AZELASTINE) [Concomitant]
  10. AFRIN [Concomitant]
  11. DURAGESIC-100 [Concomitant]
  12. EXCEDRIN (ACETYLSALICYLIC ACID, CAFFEINE, SALICYLAMIDE, PARACETAMOL) [Concomitant]
  13. CLARITIN [Concomitant]
  14. ZANTAC 150 [Concomitant]
  15. BENADRYL [Concomitant]
  16. BENADRYL [Concomitant]
  17. PREDNISONE TAB [Concomitant]

REACTIONS (4)
  - DRUG HYPERSENSITIVITY [None]
  - HEADACHE [None]
  - MYOCARDIAL ISCHAEMIA [None]
  - NON-CARDIAC CHEST PAIN [None]
